FAERS Safety Report 15943158 (Version 2)
Quarter: 2019Q2

REPORT INFORMATION
  Report Type: Spontaneous
  Country: US (occurrence: US)
  Receive Date: 20190210
  Receipt Date: 20190424
  Transmission Date: 20190711
  Serious: Yes (Other)
  Sender: FDA-Public Use
  Company Number: US-ASTRAZENECA-2018SF22603

PATIENT
  Age: 679 Month
  Sex: Female

DRUGS (39)
  1. AZITHROMYCIN ANHYDROUS. [Concomitant]
     Active Substance: AZITHROMYCIN ANHYDROUS
  2. PREDNISONE. [Concomitant]
     Active Substance: PREDNISONE
  3. TACROLIMUS. [Concomitant]
     Active Substance: TACROLIMUS
  4. VITAMIN E [Concomitant]
     Active Substance: .ALPHA.-TOCOPHEROL
  5. LISINOPRIL. [Concomitant]
     Active Substance: LISINOPRIL
  6. XANAX [Concomitant]
     Active Substance: ALPRAZOLAM
  7. CALCIUM-VITAMIN D [Concomitant]
     Active Substance: CALCIUM\VITAMIN D
  8. MULTIVITAMIN [Concomitant]
     Active Substance: VITAMINS
  9. SINGULAIR [Concomitant]
     Active Substance: MONTELUKAST SODIUM
  10. ASPIRIN. [Concomitant]
     Active Substance: ASPIRIN
  11. SPIRIVA [Concomitant]
     Active Substance: TIOTROPIUM BROMIDE MONOHYDRATE
  12. VANCOMYCIN [Concomitant]
     Active Substance: VANCOMYCIN
  13. MERREM [Concomitant]
     Active Substance: MEROPENEM
  14. MORPHINE SULPHATE [Concomitant]
     Active Substance: MORPHINE SULFATE
  15. MAGNESIUM SULPHATE [Concomitant]
     Active Substance: MAGNESIUM SULFATE
  16. NEXIUM [Suspect]
     Active Substance: ESOMEPRAZOLE MAGNESIUM
     Indication: GASTROOESOPHAGEAL REFLUX DISEASE
     Route: 048
     Dates: start: 20120101
  17. PREDNISONE. [Concomitant]
     Active Substance: PREDNISONE
  18. VITAMIN D3 [Concomitant]
     Active Substance: CHOLECALCIFEROL
  19. BROVANA [Concomitant]
     Active Substance: ARFORMOTEROL TARTRATE
  20. ALPRAZOLAM. [Concomitant]
     Active Substance: ALPRAZOLAM
  21. BACTRIM DS [Concomitant]
     Active Substance: SULFAMETHOXAZOLE\TRIMETHOPRIM
  22. CHLORTHALIDONE. [Concomitant]
     Active Substance: CHLORTHALIDONE
  23. CLONIDINE HYDROCHLORIDE. [Concomitant]
     Active Substance: CLONIDINE HYDROCHLORIDE
  24. VITAMIN E [Concomitant]
     Active Substance: .ALPHA.-TOCOPHEROL
  25. COMBIVENT [Concomitant]
     Active Substance: ALBUTEROL SULFATE\IPRATROPIUM BROMIDE
  26. CALCIUM [Concomitant]
     Active Substance: CALCIUM
  27. ACYCLOVIR. [Concomitant]
     Active Substance: ACYCLOVIR
  28. SUMATRIPTAN SUCCINATE. [Concomitant]
     Active Substance: SUMATRIPTAN SUCCINATE
  29. CLARITIN-D NOS [Concomitant]
     Active Substance: LORATADINE\PSEUDOEPHEDRINE SULFATE
  30. VITAMIN B3 [Concomitant]
     Active Substance: NIACIN
  31. TYLENOL [Concomitant]
     Active Substance: ACETAMINOPHEN
  32. ALBUTEROL. [Concomitant]
     Active Substance: ALBUTEROL
  33. PREDNISONE. [Concomitant]
     Active Substance: PREDNISONE
  34. NEXIUM [Suspect]
     Active Substance: ESOMEPRAZOLE MAGNESIUM
     Indication: GASTROOESOPHAGEAL REFLUX DISEASE
     Route: 048
     Dates: start: 20120101, end: 20140101
  35. MAGNESIUM OXIDE. [Concomitant]
     Active Substance: MAGNESIUM OXIDE
  36. METOPROLOL SUCCINATE. [Concomitant]
     Active Substance: METOPROLOL SUCCINATE
  37. GINGER. [Concomitant]
     Active Substance: GINGER
  38. IPRATROPIUM [Concomitant]
     Active Substance: IPRATROPIUM
  39. FUROSEMIDE. [Concomitant]
     Active Substance: FUROSEMIDE

REACTIONS (2)
  - Acute kidney injury [Not Recovered/Not Resolved]
  - Chronic kidney disease [Not Recovered/Not Resolved]

NARRATIVE: CASE EVENT DATE: 201612
